FAERS Safety Report 18309895 (Version 1)
Quarter: 2020Q3

REPORT INFORMATION
  Report Type: Report from Study
  Country: CA (occurrence: CA)
  Receive Date: 20200924
  Receipt Date: 20200924
  Transmission Date: 20201103
  Serious: Yes (Death)
  Sender: FDA-Public Use
  Company Number: CA-EXELIXIS-CABO-20033168

PATIENT
  Age: 55 Year
  Sex: Male

DRUGS (6)
  1. M?ESLON [Concomitant]
     Active Substance: MORPHINE SULFATE
  2. OLANZAPINE. [Concomitant]
     Active Substance: OLANZAPINE
  3. CABOMETYX [Suspect]
     Active Substance: CABOZANTINIB S-MALATE
     Indication: HEPATOCELLULAR CARCINOMA
     Dosage: 40 MG, QD
     Route: 048
     Dates: start: 20191104, end: 20200210
  4. SENOKOT [Concomitant]
     Active Substance: SENNOSIDES
  5. AMLODIPINE [Concomitant]
     Active Substance: AMLODIPINE BESYLATE
  6. PREGABALIN. [Concomitant]
     Active Substance: PREGABALIN

REACTIONS (1)
  - Death [Fatal]

NARRATIVE: CASE EVENT DATE: 20200210
